FAERS Safety Report 21157839 (Version 1)
Quarter: 2022Q3

REPORT INFORMATION
  Report Type: Spontaneous
  Country: CH (occurrence: CH)
  Receive Date: 20220801
  Receipt Date: 20220801
  Transmission Date: 20221027
  Serious: Yes (Life-Threatening, Hospitalization)
  Sender: FDA-Public Use
  Company Number: CH-MYLANLABS-2022M1082824

PATIENT
  Age: 35 Year
  Sex: Male

DRUGS (3)
  1. EPINEPHRINE [Suspect]
     Active Substance: EPINEPHRINE
     Indication: Anaphylactic reaction
     Dosage: 0.3 MILLIGRAM, TWO DOSES
     Route: 030
  2. METHYLPREDNISOLONE [Suspect]
     Active Substance: METHYLPREDNISOLONE
     Indication: Anaphylactic reaction
     Dosage: 250 MILLIGRAM
     Route: 042
  3. CLEMASTINE [Suspect]
     Active Substance: CLEMASTINE
     Indication: Anaphylactic reaction
     Dosage: 2 MILLIGRAM
     Route: 042

REACTIONS (1)
  - Drug ineffective [Unknown]
